FAERS Safety Report 23609054 (Version 1)
Quarter: 2024Q1

REPORT INFORMATION
  Report Type: Spontaneous
  Country: IT (occurrence: IT)
  Receive Date: 20240308
  Receipt Date: 20240308
  Transmission Date: 20240410
  Serious: Yes (Other)
  Sender: FDA-Public Use
  Company Number: IT-UCBSA-2024009996

PATIENT
  Sex: Female

DRUGS (1)
  1. EVENITY [Suspect]
     Active Substance: ROMOSOZUMAB-AQQG
     Indication: Product used for unknown indication
     Route: 065

REACTIONS (3)
  - Sialoadenitis [Recovering/Resolving]
  - Parotid gland enlargement [Recovering/Resolving]
  - Salivary gland enlargement [Unknown]

NARRATIVE: CASE EVENT DATE: 20240224
